FAERS Safety Report 7688247-2 (Version None)
Quarter: 2011Q3

REPORT INFORMATION
  Report Type: 
  Country: None (occurrence: None)
  Receive Date: 20110817
  Receipt Date: 20110718
  Transmission Date: 20111222
  Serious: No
  Sender: FDA-Public Use
  Company Number: US-GLAXOSMITHKLINE-A0937070A

PATIENT
  Age: 71 Year
  Sex: Female

DRUGS (4)
  1. VOTRIENT [Suspect]
     Indication: RENAL CELL CARCINOMA
     Dosage: 400MG PER DAY
     Route: 048
     Dates: start: 20110706
  2. DETROL LA [Concomitant]
  3. METOPROLOL TARTRATE [Concomitant]
  4. ZETIA [Concomitant]

REACTIONS (1)
  - BLOOD PRESSURE INCREASED [None]
